FAERS Safety Report 23685937 (Version 2)
Quarter: 2024Q2

REPORT INFORMATION
  Report Type: Report from Study
  Country: US (occurrence: None)
  Receive Date: 20240329
  Receipt Date: 20240424
  Transmission Date: 20240716
  Serious: Yes (Death)
  Sender: FDA-Public Use
  Company Number: 2024A073412

PATIENT
  Age: 84 Year
  Sex: Male
  Weight: 84.8 kg

DRUGS (1)
  1. FARXIGA [Suspect]
     Active Substance: DAPAGLIFLOZIN PROPANEDIOL
     Indication: Chronic kidney disease
     Route: 048
     Dates: start: 20220217, end: 20230919

REACTIONS (1)
  - Dementia with Lewy bodies [Fatal]
